FAERS Safety Report 5967968-3 (Version None)
Quarter: 2008Q4

REPORT INFORMATION
  Report Type: 
  Country: None (occurrence: None)
  Receive Date: 20081121
  Receipt Date: 20081114
  Transmission Date: 20090506
  Serious: Yes (Other)
  Sender: FDA-Public Use
  Company Number: 2008JP005410

PATIENT
  Age: 66 Year
  Sex: Male

DRUGS (4)
  1. FUNGUARD(MICAFUNGIN) INJECTION [Suspect]
     Dosage: 150 MG, D, IV DRIP
     Route: 041
     Dates: start: 20081105, end: 20081111
  2. TIENAM (IMIPENEM, CILASTATIN SODIUM) [Concomitant]
  3. SLOW-K [Concomitant]
  4. IRINOTECAN HCL [Concomitant]

REACTIONS (1)
  - STEVENS-JOHNSON SYNDROME [None]
